FAERS Safety Report 8740888 (Version 2)
Quarter: 2013Q1

REPORT INFORMATION
  Report Type: Report from Study
  Country: JP (occurrence: JP)
  Receive Date: 20120823
  Receipt Date: 20130214
  Transmission Date: 20140127
  Serious: Yes (Other)
  Sender: FDA-Public Use
  Company Number: JP-009507513-2012SP013074

PATIENT
  Age: 45 Year
  Sex: Male
  Weight: 72 kg

DRUGS (19)
  1. PEGINTRON [Suspect]
     Indication: CHRONIC HEPATITIS C
     Dosage: 1.5 ?G/KG, QW
     Route: 058
     Dates: start: 20120110, end: 20120130
  2. PEGINTRON [Suspect]
     Dosage: 1.0 ?G/KG, QW
     Route: 058
     Dates: start: 20120206, end: 20120618
  3. REBETOL [Suspect]
     Indication: CHRONIC HEPATITIS C
     Dosage: 800 MG, QD
     Route: 048
     Dates: start: 20120110, end: 20120212
  4. REBETOL [Suspect]
     Dosage: 400 MG, QD
     Route: 048
     Dates: start: 20120213, end: 20120312
  5. REBETOL [Suspect]
     Dosage: 600 MG, QD
     Route: 048
     Dates: start: 20120313, end: 20120506
  6. REBETOL [Suspect]
     Dosage: 800 MG, QD
     Route: 048
     Dates: start: 20120507, end: 20120520
  7. REBETOL [Suspect]
     Dosage: 600 MG, QD
     Route: 048
     Dates: start: 20120521, end: 20120618
  8. TELAVIC [Suspect]
     Indication: CHRONIC HEPATITIS C
     Dosage: 2250 MG, QD
     Route: 048
     Dates: start: 20120110, end: 20120113
  9. TELAVIC [Suspect]
     Dosage: 1500 MG, QD
     Route: 048
     Dates: start: 20120116, end: 20120402
  10. LIVALO [Concomitant]
     Indication: HYPERLIPIDAEMIA
     Dosage: 2 MG, QD
     Route: 048
     Dates: end: 20120113
  11. LIVALO [Concomitant]
     Dosage: 1 MG, QD,POR
     Route: 048
     Dates: start: 20120402
  12. CLARITIN REDITABS [Concomitant]
     Indication: PROPHYLAXIS
     Dosage: 10 MG, QD,FORMULATION:POR
     Route: 048
  13. CLARITIN REDITABS [Concomitant]
     Dosage: 10 MG, ONCE
     Route: 048
  14. SODIUM FERROUS CITRATE [Concomitant]
     Indication: IRON DEFICIENCY ANAEMIA
     Dosage: 100 MG, QD,FOR:POR
     Route: 048
  15. SINGULAIR [Concomitant]
     Indication: ASTHMA
     Dosage: 10 MG, QD,FOR:POR
     Route: 048
  16. EPINASTINE HYDROCHLORIDE [Concomitant]
     Indication: ASTHMA
     Dosage: UNK, UNKNOWN
     Route: 048
  17. EPADEL S [Concomitant]
     Indication: HYPERLIPIDAEMIA
     Dosage: 1800 MG, QD,FORMULATION:POR
     Route: 048
  18. FEROTYM [Concomitant]
     Indication: IRON DEFICIENCY ANAEMIA
     Dosage: 100 MG, QD
     Route: 048
  19. ALENAPION [Concomitant]
     Indication: ASTHMA
     Dosage: 20 MG, QD
     Route: 048

REACTIONS (3)
  - Renal disorder [Recovering/Resolving]
  - Hyperuricaemia [Recovered/Resolved]
  - Anaemia [Not Recovered/Not Resolved]
